FAERS Safety Report 5930480-1 (Version None)
Quarter: 2008Q4

REPORT INFORMATION
  Report Type: 
  Country: None (occurrence: None)
  Receive Date: 20081023
  Receipt Date: 20060817
  Transmission Date: 20090506
  Serious: Yes (Disabling, Other)
  Sender: FDA-Public Use
  Company Number: 2006AL002535

PATIENT
  Age: 44 Year
  Sex: Female

DRUGS (6)
  1. MIRTAZAPINE [Suspect]
     Indication: DEPRESSION
     Dosage: 45 MG; QD; PO
     Route: 048
     Dates: start: 20050501, end: 20060606
  2. BECLOMET [Concomitant]
  3. LEVOTHYROXINE SODIUM [Concomitant]
  4. NARATRIPTAN [Concomitant]
  5. RHINOCORT [Concomitant]
  6. ALBUTEROL SULFATE [Concomitant]

REACTIONS (4)
  - CARDIAC MURMUR [None]
  - HYPERTENSION [None]
  - OEDEMA PERIPHERAL [None]
  - WEIGHT INCREASED [None]
